FAERS Safety Report 7930744-6 (Version None)
Quarter: 2011Q4

REPORT INFORMATION
  Report Type: 
  Country: None (occurrence: None)
  Receive Date: 20111121
  Receipt Date: 20111116
  Transmission Date: 20120403
  Serious: Yes (Hospitalization)
  Sender: FDA-Public Use
  Company Number: US-GLAXOSMITHKLINE-A0871934A

PATIENT
  Age: 63 Year
  Sex: Male
  Weight: 73.6 kg

DRUGS (1)
  1. ROSIGLITAZONE MALEATE [Suspect]
     Indication: DIABETES MELLITUS
     Route: 048

REACTIONS (3)
  - CORONARY ARTERY DISEASE [None]
  - CARDIAC DISORDER [None]
  - MYOCARDIAL INFARCTION [None]
